FAERS Safety Report 8494998-2 (Version None)
Quarter: 2012Q3

REPORT INFORMATION
  Report Type: 
  Country: None (occurrence: None)
  Receive Date: 20120709
  Receipt Date: 20120702
  Transmission Date: 20120928
  Serious: Yes (Other)
  Sender: FDA-Public Use
  Company Number: GB-JNJFOC-20120311744

PATIENT
  Sex: Male

DRUGS (3)
  1. UNSPECIFIED ANTIHISTAMINES [Suspect]
     Indication: PRODUCT USED FOR UNKNOWN INDICATION
     Route: 065
     Dates: end: 20120309
  2. CHILDREN'S BENADRYL ALLERGY [Suspect]
     Indication: PRODUCT USED FOR UNKNOWN INDICATION
     Route: 048
     Dates: start: 20120308, end: 20120310
  3. CHILDREN'S BENADRYL ALLERGY [Suspect]
     Route: 048

REACTIONS (26)
  - PALPITATIONS [None]
  - STARING [None]
  - MUCOUS MEMBRANE DISORDER [None]
  - OBSESSIVE THOUGHTS [None]
  - MUSCLE SPASMS [None]
  - DYSPNOEA [None]
  - ONYCHOPHAGIA [None]
  - FEELING ABNORMAL [None]
  - INCREASED APPETITE [None]
  - PRURITUS [None]
  - NIGHTMARE [None]
  - RESTLESSNESS [None]
  - ANXIETY [None]
  - SUICIDAL IDEATION [None]
  - MOOD SWINGS [None]
  - FOAMING AT MOUTH [None]
  - AGGRESSION [None]
  - ABNORMAL BEHAVIOUR [None]
  - MOVEMENT DISORDER [None]
  - AKATHISIA [None]
  - IRRITABILITY [None]
  - DYSKINESIA [None]
  - SPEECH DISORDER [None]
  - WITHDRAWAL SYNDROME [None]
  - PSYCHOMOTOR HYPERACTIVITY [None]
  - MYALGIA [None]
